FAERS Safety Report 17159006 (Version 5)
Quarter: 2020Q1

REPORT INFORMATION
  Report Type: Spontaneous
  Country: US (occurrence: US)
  Receive Date: 20191216
  Receipt Date: 20200319
  Transmission Date: 20200409
  Serious: Yes (Other)
  Sender: FDA-Public Use
  Company Number: US-PFIZER INC-2019101772

PATIENT
  Age: 81 Year
  Sex: Male
  Weight: 74.5 kg

DRUGS (3)
  1. SUTENT [Suspect]
     Active Substance: SUNITINIB MALATE
     Indication: GASTRINOMA MALIGNANT
     Dosage: 12.5 MG, DAILY
  2. SUTENT [Suspect]
     Active Substance: SUNITINIB MALATE
     Indication: CARCINOID SYNDROME
     Dosage: 3 DF, 1X/DAY (3 CAPS ONCE DAILY)
     Route: 048
  3. SUTENT [Suspect]
     Active Substance: SUNITINIB MALATE
     Dosage: 37.5 MG, 1X/DAY
     Route: 048
     Dates: start: 2015

REACTIONS (5)
  - Product dispensing error [Unknown]
  - Off label use [Unknown]
  - Product use in unapproved indication [Unknown]
  - Glaucoma [Unknown]
  - Diabetes mellitus [Unknown]
